FAERS Safety Report 8169563-7 (Version None)
Quarter: 2012Q1

REPORT INFORMATION
  Report Type: 
  Country: None (occurrence: None)
  Receive Date: 20120228
  Receipt Date: 20120222
  Transmission Date: 20120608
  Serious: Yes (Hospitalization, Disabling, Other)
  Sender: FDA-Public Use
  Company Number: US-JNJFOC-20120104028

PATIENT
  Sex: Male
  Weight: 91.45 kg

DRUGS (9)
  1. LOVASTATIN [Concomitant]
     Route: 065
  2. BACTRIM [Suspect]
     Indication: PYREXIA
     Route: 065
     Dates: start: 20111228, end: 20120105
  3. LEVOFLOXACIN [Suspect]
     Indication: PRODUCT USED FOR UNKNOWN INDICATION
     Route: 065
     Dates: start: 20120105
  4. ALLOPURINOL [Concomitant]
     Indication: GOUT
     Route: 065
  5. VICODIN [Concomitant]
     Indication: PAIN
     Route: 065
  6. BACTRIM [Suspect]
     Indication: PNEUMOCYSTIS JIROVECI PNEUMONIA
     Route: 065
     Dates: start: 20111228, end: 20120105
  7. ROCEPHIN [Suspect]
     Indication: PYREXIA
     Route: 042
     Dates: start: 20120105, end: 20120105
  8. ACYCLOVIR [Suspect]
     Indication: PNEUMOCYSTIS JIROVECI PNEUMONIA
     Route: 065
     Dates: start: 20111228, end: 20120110
  9. LEUSTATIN [Suspect]
     Indication: HAIRY CELL LEUKAEMIA
     Dosage: FOR 7 DAYS
     Route: 042
     Dates: start: 20111228, end: 20120104

REACTIONS (11)
  - LIVER FUNCTION TEST ABNORMAL [None]
  - MYALGIA [None]
  - CHILLS [None]
  - TREMOR [None]
  - PANCYTOPENIA [None]
  - RASH [None]
  - PYREXIA [None]
  - FEELING ABNORMAL [None]
  - DRUG INEFFECTIVE [None]
  - BLOOD CREATININE INCREASED [None]
  - FLUSHING [None]
